FAERS Safety Report 7228829-5 (Version None)
Quarter: 2011Q1

REPORT INFORMATION
  Report Type: 
  Country: None (occurrence: None)
  Receive Date: 20110117
  Receipt Date: 20101221
  Transmission Date: 20110831
  Serious: Yes (Hospitalization, Other)
  Sender: FDA-Public Use
  Company Number: US-BAYER-200928603NA

PATIENT
  Sex: Female

DRUGS (39)
  1. LODINE XL [Concomitant]
     Dosage: UNK
     Dates: start: 20050101
  2. NORTREL 7/7/7 [Concomitant]
     Dosage: UNK
     Dates: start: 20060101
  3. PRENATAL VITAMINS [Concomitant]
     Dosage: UNK
     Dates: start: 20070101
  4. AUGMENTIN '125' [Concomitant]
     Dosage: UNK
     Dates: start: 20070101
  5. ISONIAZID [Concomitant]
     Dosage: UNK
     Dates: start: 20080101
  6. MUCINEX [Concomitant]
     Dosage: UNK
     Dates: start: 20090101
  7. METHOTREXATE [Concomitant]
     Dosage: UNK UNK, OW
     Route: 048
     Dates: start: 20050101
  8. FOLIC ACID [Concomitant]
     Dosage: 1 MG, UNK
     Route: 048
     Dates: start: 20050101
  9. UNCODEABLE ^UNCLASSIFIABLE^ [Concomitant]
     Dosage: UNK
     Dates: start: 20050101
  10. ULTRAM [Concomitant]
     Dosage: 50 MG, TID
     Dates: start: 20060101
  11. HUMIRA [Concomitant]
     Dosage: UNK, Q2WK
     Dates: start: 20100101
  12. AZITHROMYCIN [Concomitant]
     Dosage: UNK
     Dates: start: 20070101
  13. ENBREL [Concomitant]
     Dosage: 50 MG, UNK
     Route: 058
     Dates: start: 20050101
  14. LEXAPRO [Concomitant]
     Dosage: 10 MG, QD
     Route: 048
     Dates: start: 20050101
  15. PLAQUENIL [Concomitant]
     Dosage: UNK
     Dates: start: 20070101
  16. TOPROL-XL [Concomitant]
     Dosage: UNK
     Dates: start: 20080101
  17. DOXYCYCLINE [Concomitant]
     Dosage: UNK
     Dates: start: 20080101
  18. FLAGYL [Concomitant]
     Dosage: 500 MG, TID
     Route: 048
     Dates: start: 20100811
  19. YAZ [Suspect]
     Indication: CONTRACEPTION
     Dosage: UNK UNK, QD
     Dates: start: 20070905
  20. PREDNISONE [Concomitant]
     Dosage: 7.5 MG, QD
     Route: 048
     Dates: start: 20050101
  21. TOPAMAX [Concomitant]
     Dosage: 100 MG, QD
     Route: 048
     Dates: start: 20060101, end: 20100101
  22. HUMIRA [Concomitant]
     Dosage: UNK
     Dates: start: 20070101
  23. UNCODEABLE ^UNCLASSIFIABLE^ [Concomitant]
     Dosage: UNK
     Dates: start: 20070101
  24. TIZANIDINE [Concomitant]
     Dosage: UNK
     Dates: start: 20080101
  25. OMEPRAZOLE [Concomitant]
     Dosage: UNK
     Dates: start: 20080101
  26. ISONIAZID [Concomitant]
     Indication: TUBERCULIN TEST POSITIVE
     Dosage: 300 MG, QD
  27. ZONEGRAN [Concomitant]
     Dosage: 100 MG, UNK
     Dates: start: 20100101
  28. CIPRO [Concomitant]
     Dosage: UNK
     Dates: start: 20100101
  29. CONCERTA [Concomitant]
     Dosage: UNK
     Dates: start: 20070101
  30. EXCEDRIN (MIGRAINE) [Concomitant]
     Dosage: UNK
     Dates: start: 20070101
  31. CEFTIN [Concomitant]
     Dosage: UNK
     Dates: start: 20070101
  32. ZYRTEC [Concomitant]
     Dosage: UNK
     Dates: start: 20080101
  33. CEFZIL [Concomitant]
     Dosage: UNK
     Dates: start: 20100101
  34. DEPO-PROVERA [Concomitant]
     Dosage: UNK UNK, Q3MON
     Dates: start: 20050101
  35. LAMICTAL [Concomitant]
     Dosage: 200 MG, QD
     Route: 048
     Dates: start: 20060101, end: 20100101
  36. PHENAZOPYRIDINE HCL TAB [Concomitant]
     Dosage: UNK
     Dates: start: 20100101
  37. CYMBALTA [Concomitant]
     Dosage: 60 MG, UNK
     Dates: start: 20050101
  38. FLONASE [Concomitant]
     Dosage: UNK
     Dates: start: 20070101
  39. NEXIUM [Concomitant]
     Indication: GASTROOESOPHAGEAL REFLUX DISEASE
     Dosage: UNK
     Dates: start: 20080101

REACTIONS (14)
  - ABDOMINAL PAIN UPPER [None]
  - ABDOMINAL PAIN [None]
  - NAUSEA [None]
  - ABDOMINAL DISCOMFORT [None]
  - DEEP VEIN THROMBOSIS [None]
  - DIARRHOEA [None]
  - PAIN IN EXTREMITY [None]
  - VOMITING [None]
  - WEIGHT DECREASED [None]
  - FAECES DISCOLOURED [None]
  - HYPOKALAEMIA [None]
  - BILIARY DYSKINESIA [None]
  - CHOLECYSTITIS CHRONIC [None]
  - CHOLESTEROSIS [None]
